FAERS Safety Report 21263162 (Version 3)
Quarter: 2022Q3

REPORT INFORMATION
  Report Type: Spontaneous
  Country: FR (occurrence: FR)
  Receive Date: 20220828
  Receipt Date: 20220830
  Transmission Date: 20221027
  Serious: Yes (Other)
  Sender: FDA-Public Use
  Company Number: FR-BIOVITRUM-2022FR09796

PATIENT
  Age: 3 Year
  Sex: Female
  Weight: 16 kg

DRUGS (22)
  1. INDOMETHACIN [Suspect]
     Active Substance: INDOMETHACIN
     Indication: Still^s disease
     Dosage: 25 MG/M2
  2. ALEMTUZUMAB [Suspect]
     Active Substance: ALEMTUZUMAB
     Indication: Still^s disease
  3. BUSULFAN [Suspect]
     Active Substance: BUSULFAN
     Indication: Still^s disease
     Dosage: AUC OF 25,638 MICROM/MIN
  4. METHOTREXATE [Suspect]
     Active Substance: METHOTREXATE
     Indication: Still^s disease
  5. PREDNISOLONE [Suspect]
     Active Substance: PREDNISOLONE
     Indication: Still^s disease
  6. PREDNISOLONE [Suspect]
     Active Substance: PREDNISOLONE
     Dosage: TAPERED
  7. FLUDARABINE [Suspect]
     Active Substance: FLUDARABINE PHOSPHATE
     Indication: Still^s disease
  8. THALIDOMIDE [Suspect]
     Active Substance: THALIDOMIDE
     Indication: Still^s disease
  9. INFLIXIMAB [Suspect]
     Active Substance: INFLIXIMAB
     Indication: Graft versus host disease in gastrointestinal tract
     Dosage: FOR GRADE III GASTROINTESTINAL GVHD
  10. INFLIXIMAB [Suspect]
     Active Substance: INFLIXIMAB
     Indication: Still^s disease
  11. PENICILLIN V POTASSIUM [Suspect]
     Active Substance: PENICILLIN V POTASSIUM
     Indication: Prophylaxis
     Dosage: UNKNOWN
  12. RITUXIMAB [Suspect]
     Active Substance: RITUXIMAB
     Indication: Still^s disease
  13. METHYLPREDNISOLONE [Suspect]
     Active Substance: METHYLPREDNISOLONE
     Indication: Still^s disease
     Dosage: UNKNOWN
  14. ADALIMUMAB [Suspect]
     Active Substance: ADALIMUMAB
     Indication: Still^s disease
     Dosage: UNKNOWN
  15. MYCOPHENOLATE MOFETIL [Concomitant]
     Active Substance: MYCOPHENOLATE MOFETIL
     Indication: Prophylaxis against graft versus host disease
     Dosage: ON DAY 5
  16. CANAKINUMAB [Concomitant]
     Active Substance: CANAKINUMAB
     Indication: Still^s disease
     Dosage: UNKNOWN
  17. CYCLOPHOSPHAMIDE [Concomitant]
     Active Substance: CYCLOPHOSPHAMIDE
     Indication: Prophylaxis against graft versus host disease
     Dosage: 50 MG/KG DAY 3 AND 4
  18. TOCILIZUMAB [Concomitant]
     Active Substance: TOCILIZUMAB
     Indication: Still^s disease
     Dosage: UNKNOWN
  19. CYCLOSPORINE [Concomitant]
     Active Substance: CYCLOSPORINE
     Indication: Prophylaxis against graft versus host disease
     Dosage: ON DAY 5
  20. BUSULFAN [Concomitant]
     Active Substance: BUSULFAN
     Indication: Bone marrow conditioning regimen
     Dosage: AUC OF 25,638 MICROM/MIN
  21. FLUDARABINE [Concomitant]
     Active Substance: FLUDARABINE PHOSPHATE
     Indication: Bone marrow conditioning regimen
  22. ANAKINRA [Suspect]
     Active Substance: ANAKINRA
     Indication: Still^s disease

REACTIONS (40)
  - Impaired quality of life [Unknown]
  - Aplasia [Recovered/Resolved]
  - Hypertension [Unknown]
  - Obliterative bronchiolitis [Recovered/Resolved]
  - Graft versus host disease in skin [Recovering/Resolving]
  - Still^s disease [Recovering/Resolving]
  - Lung disorder [Recovered/Resolved]
  - Obliterative bronchiolitis [Unknown]
  - Immune thrombocytopenia [Recovering/Resolving]
  - Autoimmune thyroiditis [Unknown]
  - Condition aggravated [Unknown]
  - Joint effusion [Recovered/Resolved]
  - Osteopenia [Unknown]
  - Aplasia [Unknown]
  - Hepatic cytolysis [Unknown]
  - Red blood cell sedimentation rate increased [Unknown]
  - C-reactive protein increased [Unknown]
  - Hypothyroidism [Unknown]
  - Arthralgia [Unknown]
  - Cushingoid [Unknown]
  - Focal nodular hyperplasia [Unknown]
  - Secondary adrenocortical insufficiency [Unknown]
  - Ill-defined disorder [Unknown]
  - Graft versus host disease in gastrointestinal tract [Recovered/Resolved]
  - Acute graft versus host disease in skin [Recovering/Resolving]
  - Vitiligo [Unknown]
  - Herpes zoster [Unknown]
  - Pulmonary function test abnormal [Recovered/Resolved]
  - Growth retardation [Recovering/Resolving]
  - Inflammation [Unknown]
  - Cellulitis staphylococcal [Unknown]
  - Herpes zoster infection neurological [Unknown]
  - Cellulitis staphylococcal [Unknown]
  - Actinomycotic sepsis [Unknown]
  - Thrombocytopenia [Unknown]
  - Clostridium difficile colitis [Recovered/Resolved]
  - Drug ineffective for unapproved indication [Unknown]
  - Toxicity to various agents [Unknown]
  - Off label use [Unknown]
  - Drug resistance [Unknown]
